FAERS Safety Report 6996012-4 (Version None)
Quarter: 2010Q3

REPORT INFORMATION
  Report Type: 
  Country: None (occurrence: None)
  Receive Date: 20100918
  Receipt Date: 20081202
  Transmission Date: 20110219
  Serious: No
  Sender: FDA-Public Use
  Company Number: US-WYE-H07046808

PATIENT
  Age: 59 Year
  Sex: Female
  Weight: 44.49 kg

DRUGS (6)
  1. EFFEXOR XR [Suspect]
     Indication: DEPRESSION
     Dosage: DECREASED BY DIVIDING 75 MG CAPSULE SPHEROIDS IN HALF TO CREATE 37.5 MG ^HALVES^
     Route: 048
     Dates: start: 20081126, end: 20081130
  2. EFFEXOR XR [Suspect]
     Indication: ANXIETY
     Route: 048
     Dates: start: 20081201
  3. EFFEXOR XR [Suspect]
     Route: 048
     Dates: start: 20081123, end: 20081125
  4. KLONOPIN [Concomitant]
  5. HYDROCODONE [Concomitant]
  6. ALPRAZOLAM [Concomitant]

REACTIONS (9)
  - DIARRHOEA [None]
  - DIZZINESS [None]
  - DRUG WITHDRAWAL SYNDROME [None]
  - GLOSSODYNIA [None]
  - HEADACHE [None]
  - INTENTIONAL DRUG MISUSE [None]
  - MIGRAINE [None]
  - NERVOUSNESS [None]
  - TREMOR [None]
